FAERS Safety Report 7001913-7 (Version None)
Quarter: 2010Q3

REPORT INFORMATION
  Report Type: 
  Country: None (occurrence: None)
  Receive Date: 20100920
  Receipt Date: 20100910
  Transmission Date: 20110219
  Serious: Yes (Hospitalization)
  Sender: FDA-Public Use
  Company Number: A0796454A

PATIENT
  Age: 52 Year
  Sex: Male
  Weight: 114.1 kg

DRUGS (9)
  1. AVANDIA [Suspect]
     Route: 048
  2. AVANDAMET [Suspect]
     Indication: DIABETES MELLITUS
     Route: 048
  3. PLAVIX [Concomitant]
  4. METFORMIN [Concomitant]
  5. AMARYL [Concomitant]
  6. TRICOR [Concomitant]
  7. COZAAR [Concomitant]
  8. NORVASC [Concomitant]
  9. PRAVASTATIN [Concomitant]

REACTIONS (3)
  - ACUTE MYOCARDIAL INFARCTION [None]
  - ANGINA UNSTABLE [None]
  - CORONARY ARTERY DISEASE [None]
